FAERS Safety Report 8590751-X (Version None)
Quarter: 2012Q3

REPORT INFORMATION
  Report Type: 
  Country: None (occurrence: None)
  Receive Date: 20120813
  Receipt Date: 20120806
  Transmission Date: 20120928
  Serious: Yes (Hospitalization, Disabling, Other)
  Sender: FDA-Public Use
  Company Number: US-009507513-1205USA04489

PATIENT

DRUGS (6)
  1. FOSAMAX [Suspect]
     Indication: OSTEOPENIA
     Dosage: UNK MG, QW
     Dates: end: 20061201
  2. FUROSEMIDE [Concomitant]
     Dosage: UNK
     Dates: start: 19970324, end: 20071002
  3. DEMADEX [Concomitant]
     Dosage: UNK
     Dates: start: 19971105
  4. NITROGLYCERIN [Concomitant]
     Indication: CHEST PAIN
     Dosage: UNK
     Dates: start: 19970908, end: 20111001
  5. FOSAMAX [Suspect]
     Indication: OSTEOPOROSIS
     Dosage: 10 MG, UNK
     Route: 048
     Dates: start: 19990802, end: 20020328
  6. CARDURA [Concomitant]

REACTIONS (20)
  - FEMUR FRACTURE [None]
  - HUMERUS FRACTURE [None]
  - PUBIS FRACTURE [None]
  - BONE DENSITY DECREASED [None]
  - SCIATICA [None]
  - SPINAL PAIN [None]
  - RIB FRACTURE [None]
  - OSTEOPOROSIS [None]
  - STRESS FRACTURE [None]
  - SYNCOPE [None]
  - FRACTURE DELAYED UNION [None]
  - ASTHMA [None]
  - CHEST PAIN [None]
  - SPINAL FRACTURE [None]
  - CAROTID ARTERY DISEASE [None]
  - HIP FRACTURE [None]
  - FALL [None]
  - DEMENTIA [None]
  - ANGIOPATHY [None]
  - FRACTURE NONUNION [None]
